FAERS Safety Report 13334200 (Version 1)
Quarter: 2017Q1

REPORT INFORMATION
  Report Type: Report from Study
  Country: US (occurrence: US)
  Receive Date: 20170313
  Receipt Date: 20170313
  Transmission Date: 20170428
  Serious: Yes (Death)
  Sender: FDA-Public Use
  Company Number: US-EXELIXIS-CABO-17008381

PATIENT
  Age: 66 Year
  Sex: Female

DRUGS (10)
  1. XANAX [Concomitant]
     Active Substance: ALPRAZOLAM
  2. CABOMETYX [Suspect]
     Active Substance: CABOZANTINIB S-MALATE
     Indication: RENAL CANCER
     Dosage: 40 MG, QD
     Route: 048
     Dates: start: 20170204, end: 20170218
  3. VITAMIN B [Concomitant]
     Active Substance: VITAMIN B
  4. BIOTIN [Concomitant]
     Active Substance: BIOTIN
  5. LOVENOX [Concomitant]
     Active Substance: ENOXAPARIN SODIUM
  6. NIFEDIPINE. [Concomitant]
     Active Substance: NIFEDIPINE
  7. NORCO [Concomitant]
     Active Substance: ACETAMINOPHEN\HYDROCODONE BITARTRATE
  8. LEXAPRO [Concomitant]
     Active Substance: ESCITALOPRAM OXALATE
  9. METOPROLOL. [Concomitant]
     Active Substance: METOPROLOL
  10. ASPIRIN. [Concomitant]
     Active Substance: ASPIRIN

REACTIONS (1)
  - Death [Fatal]

NARRATIVE: CASE EVENT DATE: 20170301
